FAERS Safety Report 8179345-8 (Version None)
Quarter: 2012Q1

REPORT INFORMATION
  Report Type: 
  Country: None (occurrence: None)
  Receive Date: 20120302
  Receipt Date: 20120222
  Transmission Date: 20120608
  Serious: Yes (Other)
  Sender: FDA-Public Use
  Company Number: FR-JNJFOC-20111207861

PATIENT
  Sex: Female

DRUGS (2)
  1. STELARA [Suspect]
     Indication: PSORIASIS
     Route: 058
     Dates: start: 20110620, end: 20111205
  2. ASPIRIN [Concomitant]
     Indication: AORTIC ANEURYSM

REACTIONS (1)
  - PSORIATIC ARTHROPATHY [None]
